FAERS Safety Report 19594457 (Version 2)
Quarter: 2021Q3

REPORT INFORMATION
  Report Type: Spontaneous
  Country: US (occurrence: US)
  Receive Date: 20210722
  Receipt Date: 20210915
  Transmission Date: 20211014
  Serious: No
  Sender: FDA-Public Use
  Company Number: US-SA-2021SA239243

PATIENT
  Age: 60 Year
  Sex: Female

DRUGS (2)
  1. DUPIXENT [Suspect]
     Active Substance: DUPILUMAB
     Indication: DERMATITIS ATOPIC
     Dosage: 300 MG, QOW
     Route: 058
     Dates: start: 20210426
  2. AZELASTINE HYDROCHLORIDE. [Concomitant]
     Active Substance: AZELASTINE HYDROCHLORIDE
     Dosage: UNK
     Route: 065

REACTIONS (4)
  - Eye pruritus [Not Recovered/Not Resolved]
  - Dry eye [Unknown]
  - Ocular hyperaemia [Not Recovered/Not Resolved]
  - Periorbital irritation [Unknown]

NARRATIVE: CASE EVENT DATE: 2021
